FAERS Safety Report 25291410 (Version 2)
Quarter: 2025Q3

REPORT INFORMATION
  Report Type: Spontaneous
  Country: US (occurrence: US)
  Receive Date: 20250510
  Receipt Date: 20250708
  Transmission Date: 20251021
  Serious: No
  Sender: SANOFI AVENTIS
  Company Number: US-SA-SAC20240517000177

PATIENT
  Sex: Female
  Weight: 48.18 kg

DRUGS (1)
  1. DUPIXENT [Suspect]
     Active Substance: DUPILUMAB
     Indication: Dermatitis atopic
     Dosage: 300 MG, QOW
     Route: 058

REACTIONS (4)
  - Fatigue [Unknown]
  - Disorientation [Unknown]
  - Frustration tolerance decreased [Unknown]
  - Malaise [Not Recovered/Not Resolved]
